FAERS Safety Report 12548522 (Version 1)
Quarter: 2016Q3

REPORT INFORMATION
  Report Type: Spontaneous
  Country: US (occurrence: US)
  Receive Date: 20160712
  Receipt Date: 20160712
  Transmission Date: 20161109
  Serious: No
  Sender: FDA-Public Use
  Company Number: US-OCTA-GAM13316US

PATIENT
  Sex: Female
  Weight: 102 kg

DRUGS (1)
  1. OCTAGAM IMMUNE GLOBULIN (HUMAN) [Suspect]
     Active Substance: HUMAN IMMUNOGLOBULIN G
     Indication: IMMUNODEFICIENCY
     Route: 042

REACTIONS (3)
  - Muscle spasms [Unknown]
  - Nausea [Unknown]
  - Headache [Unknown]
